FAERS Safety Report 6302921-1 (Version None)
Quarter: 2009Q3

REPORT INFORMATION
  Report Type: 
  Country: None (occurrence: None)
  Receive Date: 20090810
  Receipt Date: 20090803
  Transmission Date: 20100115
  Serious: Yes (Congenital Anomaly)
  Sender: FDA-Public Use
  Company Number: A0681246A

PATIENT
  Sex: Female
  Weight: 3.1 kg

DRUGS (2)
  1. PAXIL [Suspect]
     Indication: STRESS
     Dosage: 20MG PER DAY
     Dates: start: 20020101, end: 20020101
  2. VITAMIN TAB [Concomitant]

REACTIONS (5)
  - CLEFT LIP AND PALATE [None]
  - CONGENITAL AORTIC STENOSIS [None]
  - DRUG EXPOSURE DURING PREGNANCY [None]
  - HEART DISEASE CONGENITAL [None]
  - PULMONARY VALVE STENOSIS CONGENITAL [None]
